FAERS Safety Report 9666596 (Version 3)
Quarter: 2021Q4

REPORT INFORMATION
  Report Type: Report from Study
  Country: US (occurrence: US)
  Receive Date: 20131104
  Receipt Date: 20211217
  Transmission Date: 20220303
  Serious: Yes (Hospitalization, Other)
  Sender: FDA-Public Use
  Company Number: US-SHIRE-ALL1-2013-07532

PATIENT
  Age: 30 Year
  Sex: Male

DRUGS (17)
  1. IDURSULFASE [Suspect]
     Active Substance: IDURSULFASE
     Indication: Mucopolysaccharidosis II
     Dosage: 0.5 MILLIGRAM/KILOGRAM, 1X/WEEK
     Route: 042
     Dates: start: 20100204
  2. IDURSULFASE [Suspect]
     Active Substance: IDURSULFASE
     Dosage: 0.51 MILLIGRAM/KILOGRAM, 1X/WEEK
     Route: 042
     Dates: start: 20100528
  3. IDURSULFASE [Suspect]
     Active Substance: IDURSULFASE
     Dosage: 0.5 MILLIGRAM/KILOGRAM, 1X/WEEK
     Route: 042
     Dates: start: 20100719
  4. IDURSULFASE [Suspect]
     Active Substance: IDURSULFASE
     Dosage: 0.48 MILLIGRAM/KILOGRAM, 1X/WEEK
     Route: 042
     Dates: start: 20110926
  5. IDURSULFASE [Suspect]
     Active Substance: IDURSULFASE
     Dosage: 0.47 MILLIGRAM/KILOGRAM, 1X/WEEK
     Route: 042
     Dates: start: 20120326
  6. IDURSULFASE [Suspect]
     Active Substance: IDURSULFASE
     Dosage: 0.46 MILLIGRAM/KILOGRAM, 1X/WEEK
     Route: 042
     Dates: start: 20120726
  7. IDURSULFASE [Suspect]
     Active Substance: IDURSULFASE
     Dosage: 0.5 MILLIGRAM/KILOGRAM, 1/WEEK
     Route: 042
     Dates: start: 20150205
  8. FRUSEMIDE                          /00032601/ [Concomitant]
     Indication: Cardiovascular disorder
     Dosage: 100 MG, 1X/DAY:QD
     Route: 042
     Dates: start: 20120327, end: 20120330
  9. FRUSEMIDE                          /00032601/ [Concomitant]
     Dosage: 240 MG, 2X/DAY:BID
     Route: 048
     Dates: start: 20120325
  10. BUMETANIDE [Concomitant]
     Active Substance: BUMETANIDE
     Indication: Cardiovascular disorder
     Dosage: 6 MG, 2X/DAY:BID
     Route: 048
     Dates: start: 20120322
  11. DOCUSATE [Concomitant]
     Active Substance: DOCUSATE
     Indication: Gastrointestinal disorder
     Dosage: 100 MG, 2X/DAY:BID
     Route: 048
     Dates: start: 20120307
  12. LEXAPRO [Concomitant]
     Active Substance: ESCITALOPRAM OXALATE
     Indication: Depression
     Dosage: 40 MG, 1X/DAY:QD
     Route: 048
  13. LEXAPRO [Concomitant]
     Active Substance: ESCITALOPRAM OXALATE
     Indication: Anxiety
  14. IBUPROFEN [Concomitant]
     Active Substance: IBUPROFEN
     Indication: Premedication
     Dosage: 100 MG, UNKNOWN
     Route: 048
  15. IBUPROFEN [Concomitant]
     Active Substance: IBUPROFEN
     Indication: Pain
  16. CLARITIN                           /00917501/ [Concomitant]
     Indication: Premedication
     Dosage: 10 MG, UNKNOWN
     Route: 048
  17. GLICLAZIDE [Concomitant]
     Active Substance: GLICLAZIDE
     Dosage: UNK
     Route: 065

REACTIONS (2)
  - Hepatic encephalopathy [Recovered/Resolved]
  - Cardiac failure acute [Recovered/Resolved]

NARRATIVE: CASE EVENT DATE: 20120328
